FAERS Safety Report 5162007-9 (Version None)
Quarter: 2006Q4

REPORT INFORMATION
  Report Type: 
  Country: None (occurrence: None)
  Receive Date: 20061121
  Receipt Date: 20061114
  Transmission Date: 20070319
  Serious: Yes (Other)
  Sender: FDA-Public Use
  Company Number: 228230

PATIENT
  Age: 86 Year
  Sex: Female

DRUGS (8)
  1. GRTPA                   ALTEPLASE) [Suspect]
     Indication: CEREBRAL INFARCTION
     Dosage: 32.5 ML, SINGLE, INTRAVENOUS
     Route: 042
     Dates: start: 20060722, end: 20060722
  2. RINGERS LACTATE                (RINGER'S INJECTION, LACTATED) [Concomitant]
  3. RADICUT          (EDARAVONE) [Concomitant]
  4. AMINOFLUID                    (AMINOACIDS, ELECTROLYTES NOS, GLUCOSE) [Concomitant]
  5. FAMOTIDINE [Concomitant]
  6. VITAMEDIN (BENFOTIAMINE, CYANOCOBALAMIN, HYDROXOCOBALAMIN, PYRIDOXINE [Concomitant]
  7. PRIMPERAN ELIXIR [Concomitant]
  8. HALOPERIDOL [Concomitant]

REACTIONS (4)
  - ACTIVATED PARTIAL THROMBOPLASTIN TIME PROLONGED [None]
  - BODY TEMPERATURE DECREASED [None]
  - CAROTID ARTERY STENOSIS [None]
  - CEREBRAL HYPERPERFUSION SYNDROME [None]
